FAERS Safety Report 17439748 (Version 1)
Quarter: 2020Q1

REPORT INFORMATION
  Report Type: Report from Study
  Country: CA (occurrence: CA)
  Receive Date: 20200220
  Receipt Date: 20200220
  Transmission Date: 20200409
  Serious: Yes (Other)
  Sender: FDA-Public Use
  Company Number: CA-GLAXOSMITHKLINE-CA2020AMR026816

PATIENT
  Sex: Female

DRUGS (3)
  1. QVAR [Suspect]
     Active Substance: BECLOMETHASONE DIPROPIONATE
     Indication: PRODUCT USED FOR UNKNOWN INDICATION
     Dosage: 2 DF, BID(400 UG)
  2. SALBUTAMOL SULPHATE [Suspect]
     Active Substance: ALBUTEROL SULFATE
     Indication: PRODUCT USED FOR UNKNOWN INDICATION
     Dosage: UNK UNK, PRN
  3. NUCALA [Suspect]
     Active Substance: MEPOLIZUMAB
     Indication: ASTHMA
     Dosage: 100 MG, Z(MONTHLY)
     Route: 058
     Dates: start: 20180410

REACTIONS (20)
  - Viral infection [Unknown]
  - Bronchial secretion retention [Recovering/Resolving]
  - Pneumonia [Unknown]
  - Rhinitis allergic [Unknown]
  - Lymph node calcification [Recovered/Resolved]
  - Bronchitis [Unknown]
  - Eosinophil count increased [Unknown]
  - Malaise [Unknown]
  - Chills [Unknown]
  - Influenza [Unknown]
  - Blood immunoglobulin E increased [Unknown]
  - Sputum discoloured [Unknown]
  - Cough [Recovering/Resolving]
  - Pyrexia [Unknown]
  - Pain in extremity [Unknown]
  - Bacterial infection [Unknown]
  - Bronchopulmonary aspergillosis allergic [Unknown]
  - Asthma [Unknown]
  - Productive cough [Recovering/Resolving]
  - Bronchiectasis [Unknown]
